FAERS Safety Report 7768564-8 (Version None)
Quarter: 2011Q3

REPORT INFORMATION
  Report Type: 
  Country: None (occurrence: None)
  Receive Date: 20110922
  Receipt Date: 20110624
  Transmission Date: 20111222
  Serious: No
  Sender: FDA-Public Use
  Company Number: US-ASTRAZENECA-2010SE26780

PATIENT
  Age: 88 Year
  Sex: Female
  Weight: 72.6 kg

DRUGS (2)
  1. SEROQUEL [Suspect]
     Indication: DEMENTIA ALZHEIMER'S TYPE
     Route: 048
     Dates: start: 20100430
  2. SEROQUEL [Suspect]
     Route: 048
     Dates: start: 20100430

REACTIONS (14)
  - DYSPHEMIA [None]
  - TONGUE PARALYSIS [None]
  - WEIGHT INCREASED [None]
  - SEDATION [None]
  - DYSGEUSIA [None]
  - URINARY TRACT INFECTION [None]
  - INFECTION [None]
  - GAIT DISTURBANCE [None]
  - DYSPHAGIA [None]
  - CHOKING [None]
  - COUGH [None]
  - DECREASED APPETITE [None]
  - BODY TEMPERATURE FLUCTUATION [None]
  - TREMOR [None]
